FAERS Safety Report 6005899-3 (Version None)
Quarter: 2008Q4

REPORT INFORMATION
  Report Type: 
  Country: None (occurrence: None)
  Receive Date: 20081216
  Receipt Date: 20081216
  Transmission Date: 20090506
  Serious: No
  Sender: FDA-Public Use
  Company Number: None

PATIENT

DRUGS (1)
  1. LEVAQUIN [Suspect]

REACTIONS (5)
  - DRUG ADMINISTRATION ERROR [None]
  - FALL [None]
  - HEPATIC FUNCTION ABNORMAL [None]
  - JOINT INJURY [None]
  - TENDON RUPTURE [None]
